FAERS Safety Report 14861817 (Version 2)
Quarter: 2018Q2

REPORT INFORMATION
  Report Type: Spontaneous
  Country: US (occurrence: US)
  Receive Date: 20180508
  Receipt Date: 20180516
  Transmission Date: 20180711
  Serious: Yes (Other)
  Sender: FDA-Public Use
  Company Number: US-AMGEN-USASP2018060492

PATIENT

DRUGS (1)
  1. ENBREL [Suspect]
     Active Substance: ETANERCEPT
     Indication: EXPOSURE DURING PREGNANCY
     Dosage: 50 MG, QWK
     Route: 064
     Dates: start: 201611

REACTIONS (5)
  - Croup infectious [Unknown]
  - Cough [Unknown]
  - Fine motor delay [Unknown]
  - Influenza [Unknown]
  - Respiratory syncytial virus infection [Unknown]
